FAERS Safety Report 7223856-6 (Version None)
Quarter: 2011Q1

REPORT INFORMATION
  Report Type: 
  Country: None (occurrence: None)
  Receive Date: 20110112
  Receipt Date: 20110104
  Transmission Date: 20110831
  Serious: Yes (Hospitalization)
  Sender: FDA-Public Use
  Company Number: US-ELI_LILLY_AND_COMPANY-US201101001636

PATIENT
  Sex: Male

DRUGS (1)
  1. HUMULIN R [Suspect]
     Indication: DIABETES MELLITUS
     Dosage: 80 U, 2/D
     Dates: start: 20101221, end: 20101221

REACTIONS (2)
  - STUPOR [None]
  - DIABETES MELLITUS INADEQUATE CONTROL [None]
